FAERS Safety Report 16587606 (Version 2)
Quarter: 2019Q3

REPORT INFORMATION
  Report Type: Spontaneous
  Country: PL (occurrence: PL)
  Receive Date: 20190717
  Receipt Date: 20190813
  Transmission Date: 20191004
  Serious: No
  Sender: FDA-Public Use
  Company Number: PL-BAUSCH-BL-2019-019846

PATIENT
  Age: 10 Year
  Sex: Male

DRUGS (11)
  1. TACROLIMUS. [Suspect]
     Active Substance: TACROLIMUS
     Indication: NEPHROTIC SYNDROME
     Route: 065
     Dates: start: 2014, end: 2015
  2. PREDNISONE. [Concomitant]
     Active Substance: PREDNISONE
  3. METHYLPREDNISOLONE. [Concomitant]
     Active Substance: METHYLPREDNISOLONE
     Dosage: DOSE REDUCTION
     Route: 065
     Dates: end: 2018
  4. PREDNISONE. [Concomitant]
     Active Substance: PREDNISONE
  5. MYCOPHENOLATE MOFETIL. [Concomitant]
     Active Substance: MYCOPHENOLATE MOFETIL
     Indication: NEPHROTIC SYNDROME
     Route: 065
     Dates: start: 2014, end: 2014
  6. CYCLOSPORIN A [Concomitant]
     Active Substance: CYCLOSPORINE
     Dates: start: 2015
  7. METHYLPREDNISOLONE. [Concomitant]
     Active Substance: METHYLPREDNISOLONE
     Indication: NEPHROTIC SYNDROME
     Route: 065
     Dates: start: 2014
  8. PREDNISONE. [Concomitant]
     Active Substance: PREDNISONE
     Indication: NEPHROTIC SYNDROME
     Dosage: DAY 13
     Dates: start: 2011
  9. PREDNISONE. [Concomitant]
     Active Substance: PREDNISONE
  10. CYCLOSPORIN A [Concomitant]
     Active Substance: CYCLOSPORINE
     Indication: NEPHROTIC SYNDROME
     Dates: start: 2012, end: 2014
  11. ENALAPRIL [Concomitant]
     Active Substance: ENALAPRIL
     Indication: HYPERTENSION

REACTIONS (1)
  - Diarrhoea [Unknown]

NARRATIVE: CASE EVENT DATE: 2015
